FAERS Safety Report 5442538-4 (Version None)
Quarter: 2007Q3

REPORT INFORMATION
  Report Type: 
  Country: None (occurrence: None)
  Receive Date: 20070830
  Receipt Date: 20070816
  Transmission Date: 20080115
  Serious: Yes (Other)
  Sender: FDA-Public Use
  Company Number: 017431

PATIENT
  Age: 16 Year
  Sex: Male

DRUGS (2)
  1. CLARAVIS [Suspect]
     Indication: ACNE CYSTIC
     Dosage: 60 MG, QD, ORAL; 60 MG, BID, ORAL
     Route: 048
     Dates: end: 20070608
  2. CLARAVIS [Suspect]
     Indication: ACNE CYSTIC
     Dosage: 60 MG, QD, ORAL; 60 MG, BID, ORAL
     Route: 048
     Dates: start: 20070313

REACTIONS (2)
  - EXCESSIVE GRANULATION TISSUE [None]
  - PAIN OF SKIN [None]
